FAERS Safety Report 12921426 (Version 1)
Quarter: 2016Q4

REPORT INFORMATION
  Report Type: Spontaneous
  Country: US (occurrence: US)
  Receive Date: 20161108
  Receipt Date: 20161108
  Transmission Date: 20170207
  Serious: Yes (Other)
  Sender: FDA-Public Use
  Company Number: US-PFIZER INC-2016512091

PATIENT
  Age: 39 Year
  Sex: Male

DRUGS (1)
  1. METHOTREXATE SODIUM. [Suspect]
     Active Substance: METHOTREXATE SODIUM

REACTIONS (24)
  - Pancytopenia [Unknown]
  - Hyperglycaemia [Unknown]
  - Diarrhoea [Unknown]
  - Escherichia infection [Not Recovered/Not Resolved]
  - Weight decreased [Unknown]
  - Pyrexia [Unknown]
  - Disseminated intravascular coagulation [Unknown]
  - Hypotension [Unknown]
  - Pneumonia klebsiella [Unknown]
  - Tumour lysis syndrome [Unknown]
  - Neuropathy peripheral [Unknown]
  - Proctalgia [Unknown]
  - Febrile neutropenia [Unknown]
  - Cholecystitis acute [Unknown]
  - Mastoiditis [Unknown]
  - Abdominal pain upper [Unknown]
  - Nausea [Unknown]
  - Tachycardia [Unknown]
  - Tenderness [Unknown]
  - Neutropenia [Recovered/Resolved]
  - Pyrexia [Recovering/Resolving]
  - Induration [Unknown]
  - Orthostatic hypotension [Unknown]
  - Transfusion reaction [Unknown]

NARRATIVE: CASE EVENT DATE: 201506
